FAERS Safety Report 18189904 (Version 1)
Quarter: 2020Q3

REPORT INFORMATION
  Report Type: Spontaneous
  Country: US (occurrence: US)
  Receive Date: 20200824
  Receipt Date: 20200824
  Transmission Date: 20201103
  Serious: No
  Sender: FDA-Public Use
  Company Number: NVSC2020US231754

PATIENT
  Sex: Female

DRUGS (1)
  1. VIVELLE?DOT [Suspect]
     Active Substance: ESTRADIOL
     Indication: PRODUCT USED FOR UNKNOWN INDICATION
     Dosage: 0.5 MG, Q2W
     Route: 062

REACTIONS (3)
  - Fall [Unknown]
  - Ligament sprain [Unknown]
  - Product adhesion issue [Unknown]
